FAERS Safety Report 7006650-0 (Version None)
Quarter: 2010Q3

REPORT INFORMATION
  Report Type: 
  Country: None (occurrence: None)
  Receive Date: 20100921
  Receipt Date: 20100921
  Transmission Date: 20110219
  Serious: Yes (Hospitalization, Other)
  Sender: FDA-Public Use
  Company Number: None

PATIENT
  Age: 21 Year
  Sex: Female
  Weight: 74.1 kg

DRUGS (2)
  1. ACETADOTE [Suspect]
     Indication: DRUG TOXICITY
     Dosage: 53 GRAMS OVER 1 HOUR  IV BOLUS
     Route: 040
     Dates: start: 20100912, end: 20100912
  2. ACETADOTE [Suspect]
     Dosage: 1.7 GRAMS OVER NEXT 20 MINS IV DRIP
     Route: 041

REACTIONS (7)
  - HAEMODIALYSIS [None]
  - HAEMOLYTIC ANAEMIA [None]
  - HYPOTENSION [None]
  - INCORRECT DOSE ADMINISTERED [None]
  - MEDICATION ERROR [None]
  - RENAL FAILURE ACUTE [None]
  - THROMBOCYTOPENIA [None]
